FAERS Safety Report 19543356 (Version 3)
Quarter: 2021Q4

REPORT INFORMATION
  Report Type: Spontaneous
  Country: JP (occurrence: JP)
  Receive Date: 20210714
  Receipt Date: 20211018
  Transmission Date: 20220303
  Serious: Yes (Other)
  Sender: FDA-Public Use
  Company Number: JP-AMGEN-JPNSP2021105484

PATIENT
  Age: 71 Year
  Sex: Female

DRUGS (1)
  1. EVENITY [Suspect]
     Active Substance: ROMOSOZUMAB-AQQG
     Indication: Osteoporosis
     Dosage: 210 MILLIGRAM
     Route: 058

REACTIONS (3)
  - Osteonecrosis of jaw [Recovered/Resolved]
  - Oroantral fistula [Unknown]
  - Sinusitis [Unknown]
